FAERS Safety Report 26114265 (Version 1)
Quarter: 2025Q4

REPORT INFORMATION
  Report Type: Spontaneous
  Country: EU (occurrence: EU)
  Receive Date: 20251202
  Receipt Date: 20251202
  Transmission Date: 20260117
  Serious: Yes (Other)
  Sender: PFIZER
  Company Number: EU-PFIZER INC-PV202500139193

PATIENT
  Age: 53 Year
  Sex: Male

DRUGS (4)
  1. DOCETAXEL [Suspect]
     Active Substance: DOCETAXEL
     Indication: Prostate cancer metastatic
     Dosage: UNK
     Dates: start: 20231130, end: 20240314
  2. ABIRATERONE [Concomitant]
     Active Substance: ABIRATERONE
     Indication: Prostate cancer
     Dosage: UNK
     Dates: start: 20231221
  3. PREDNISONE [Concomitant]
     Active Substance: PREDNISONE
     Indication: Prostate cancer
     Dosage: UNK
     Dates: start: 20231221
  4. TRIPTORELIN [Concomitant]
     Active Substance: TRIPTORELIN
     Dosage: SEMI-ANNUAL
     Dates: start: 20231107

REACTIONS (5)
  - Prostate cancer metastatic [Unknown]
  - Malignant neoplasm progression [Unknown]
  - Pain [Recovered/Resolved]
  - Paraesthesia [Unknown]
  - Nail toxicity [Unknown]

NARRATIVE: CASE EVENT DATE: 20250318
